FAERS Safety Report 17289761 (Version 1)
Quarter: 2020Q1

REPORT INFORMATION
  Report Type: Spontaneous
  Country: GR (occurrence: GR)
  Receive Date: 20200120
  Receipt Date: 20200120
  Transmission Date: 20200409
  Serious: Yes (Other)
  Sender: FDA-Public Use
  Company Number: GR-MYLANLABS-2020M1004490

PATIENT
  Age: 71 Year
  Sex: Female
  Weight: 70 kg

DRUGS (8)
  1. EZETIMIBE. [Suspect]
     Active Substance: EZETIMIBE
     Indication: TYPE IIA HYPERLIPIDAEMIA
     Route: 048
     Dates: start: 2009, end: 2012
  2. ROSUVASTATIN. [Suspect]
     Active Substance: ROSUVASTATIN
     Indication: TYPE IIA HYPERLIPIDAEMIA
     Route: 048
     Dates: start: 2009, end: 2012
  3. AROMASIN [Concomitant]
     Active Substance: EXEMESTANE
     Indication: BREAST CANCER
     Dates: end: 2015
  4. THYROHORMONE [Concomitant]
     Active Substance: LEVOTHYROXINE SODIUM
     Indication: HYPOTHYROIDISM
  5. INEGY [Suspect]
     Active Substance: EZETIMIBE\SIMVASTATIN
     Indication: TYPE IIA HYPERLIPIDAEMIA
     Dosage: 1 DOSAGE FORM, QD
     Route: 048
     Dates: start: 2013, end: 2013
  6. PRAVASTATIN. [Suspect]
     Active Substance: PRAVASTATIN
     Indication: TYPE IIA HYPERLIPIDAEMIA
     Dosage: 40 MILLIGRAM, QD
     Route: 048
     Dates: start: 2013, end: 2013
  7. PITAVASTATIN. [Suspect]
     Active Substance: PITAVASTATIN CALCIUM
     Indication: TYPE IIA HYPERLIPIDAEMIA
     Dosage: 4 MILLIGRAM, QD
     Route: 048
     Dates: start: 2015, end: 2016
  8. PRAVASTATIN. [Suspect]
     Active Substance: PRAVASTATIN
     Dosage: 40 MILLIGRAM, QD
     Route: 048
     Dates: start: 2013, end: 2015

REACTIONS (2)
  - Myalgia [Recovered/Resolved]
  - Gait disturbance [Recovered/Resolved]

NARRATIVE: CASE EVENT DATE: 2009
